FAERS Safety Report 9354304 (Version 1)
Quarter: 2013Q2

REPORT INFORMATION
  Report Type: Spontaneous
  Country: US (occurrence: US)
  Receive Date: 20130618
  Receipt Date: 20130618
  Transmission Date: 20140414
  Serious: No
  Sender: FDA-Public Use
  Company Number: US-TARO-2012P1066199

PATIENT
  Age: 60 Year
  Sex: Female
  Weight: 74.84 kg

DRUGS (3)
  1. DIFLORASONE DIACETATE [Suspect]
     Route: 061
     Dates: start: 20121128, end: 20121130
  2. MOBIC [Concomitant]
  3. VITAMIN E [Concomitant]

REACTIONS (4)
  - Application site pruritus [Not Recovered/Not Resolved]
  - Application site pain [Not Recovered/Not Resolved]
  - Application site papules [Not Recovered/Not Resolved]
  - Skin disorder [Not Recovered/Not Resolved]
